APPROVED DRUG PRODUCT: TRINTELLIX
Active Ingredient: VORTIOXETINE HYDROBROMIDE
Strength: EQ 10MG BASE
Dosage Form/Route: TABLET;ORAL
Application: N204447 | Product #002
Applicant: TAKEDA PHARMACEUTICALS USA INC
Approved: Sep 30, 2013 | RLD: Yes | RS: No | Type: RX

PATENTS:
Patent 9861630 | Expires: Jun 15, 2027
Patent 9125910 | Expires: Jun 15, 2027
Patent 7144884 | Expires: Jun 17, 2026
Patent 8969355 | Expires: Jun 15, 2027
Patent 9227946 | Expires: Jun 15, 2027
Patent 9125908 | Expires: Jun 15, 2027
Patent 11458134 | Expires: Jun 15, 2027
Patent 9125909 | Expires: Jun 15, 2027
Patent 9278096 | Expires: Mar 21, 2032
Patent 8722684 | Expires: Jun 30, 2031
Patent 8722684*PED | Expires: Dec 30, 2031
Patent 7144884*PED | Expires: Dec 17, 2026
Patent 8969355*PED | Expires: Dec 15, 2027
Patent 9227946*PED | Expires: Dec 15, 2027
Patent 9125908*PED | Expires: Dec 15, 2027
Patent 9125909*PED | Expires: Dec 15, 2027
Patent 9125910*PED | Expires: Dec 15, 2027
Patent 9861630*PED | Expires: Dec 15, 2027
Patent 9278096*PED | Expires: Sep 21, 2032
Patent 11458134*PED | Expires: Dec 15, 2027

EXCLUSIVITY:
Code: M-232 | Date: Aug 23, 2026
Code: PED | Date: Feb 23, 2027